FAERS Safety Report 24761998 (Version 1)
Quarter: 2024Q4

REPORT INFORMATION
  Report Type: Spontaneous
  Country: AU (occurrence: AU)
  Receive Date: 20241221
  Receipt Date: 20241221
  Transmission Date: 20250115
  Serious: Yes (Other)
  Sender: AMGEN
  Company Number: AU-AMGEN-AUSSP2024243933

PATIENT
  Sex: Male

DRUGS (2)
  1. ADALIMUMAB [Suspect]
     Active Substance: ADALIMUMAB
     Indication: Colitis ulcerative
     Dosage: UNK
     Route: 065
  2. ADALIMUMAB [Suspect]
     Active Substance: ADALIMUMAB
     Dosage: UNK (DOSE INCREASED)
     Route: 065

REACTIONS (3)
  - Colitis ulcerative [Unknown]
  - Therapeutic response decreased [Unknown]
  - Therapeutic product effect incomplete [Unknown]
